FAERS Safety Report 4669951-7 (Version None)
Quarter: 2005Q2

REPORT INFORMATION
  Report Type: 
  Country: None (occurrence: None)
  Receive Date: 20050523
  Receipt Date: 20050421
  Transmission Date: 20051028
  Serious: Yes (Other)
  Sender: FDA-Public Use
  Company Number: PHBS2005PE05729

PATIENT
  Age: 28 Year
  Sex: Female

DRUGS (2)
  1. ZELMAC [Suspect]
     Indication: IRRITABLE BOWEL SYNDROME
     Dosage: 6 MG, BID
     Route: 048
     Dates: start: 20050415, end: 20050418
  2. ZELMAC [Suspect]
     Dosage: 6 MG, QD
     Route: 048

REACTIONS (2)
  - DEHYDRATION [None]
  - DIARRHOEA [None]
